FAERS Safety Report 25674258 (Version 1)
Quarter: 2025Q3

REPORT INFORMATION
  Report Type: Report from Study
  Country: CA (occurrence: CA)
  Receive Date: 20250813
  Receipt Date: 20250813
  Transmission Date: 20251020
  Serious: Yes (Other)
  Sender: CSL BEHRING
  Company Number: CA-BEH-2025207827

PATIENT
  Age: 72 Year
  Sex: Female
  Weight: 50 kg

DRUGS (39)
  1. HIZENTRA [Suspect]
     Active Substance: HUMAN IMMUNOGLOBULIN G
     Indication: Secondary immunodeficiency
     Dosage: 4 G, BIW
     Route: 058
     Dates: start: 20220224
  2. HIZENTRA [Suspect]
     Active Substance: HUMAN IMMUNOGLOBULIN G
     Indication: Secondary immunodeficiency
     Dosage: 4 G, BIW
     Route: 058
     Dates: start: 20220224
  3. HIZENTRA [Suspect]
     Active Substance: HUMAN IMMUNOGLOBULIN G
     Route: 065
     Dates: start: 20250523
  4. HIZENTRA [Suspect]
     Active Substance: HUMAN IMMUNOGLOBULIN G
     Route: 065
     Dates: start: 20250523
  5. HIZENTRA [Suspect]
     Active Substance: HUMAN IMMUNOGLOBULIN G
     Route: 065
  6. HIZENTRA [Suspect]
     Active Substance: HUMAN IMMUNOGLOBULIN G
     Route: 065
  7. HIZENTRA [Suspect]
     Active Substance: HUMAN IMMUNOGLOBULIN G
     Route: 065
     Dates: start: 20250527
  8. HIZENTRA [Suspect]
     Active Substance: HUMAN IMMUNOGLOBULIN G
     Route: 065
     Dates: start: 20250527
  9. HIZENTRA [Suspect]
     Active Substance: HUMAN IMMUNOGLOBULIN G
     Route: 065
     Dates: start: 20250529
  10. HIZENTRA [Suspect]
     Active Substance: HUMAN IMMUNOGLOBULIN G
     Route: 065
     Dates: start: 20250529
  11. HIZENTRA [Suspect]
     Active Substance: HUMAN IMMUNOGLOBULIN G
     Dosage: 4 G, BIW
     Route: 058
     Dates: start: 20220224
  12. HIZENTRA [Suspect]
     Active Substance: HUMAN IMMUNOGLOBULIN G
     Dosage: 4 G, BIW
     Route: 058
     Dates: start: 20220224
  13. HIZENTRA [Suspect]
     Active Substance: HUMAN IMMUNOGLOBULIN G
     Dosage: 4 G, BIW
     Route: 058
     Dates: start: 20220224
  14. HIZENTRA [Suspect]
     Active Substance: HUMAN IMMUNOGLOBULIN G
     Dosage: 4 G, BIW
     Route: 058
     Dates: start: 20220224
  15. HIZENTRA [Suspect]
     Active Substance: HUMAN IMMUNOGLOBULIN G
     Dosage: 4 G, QW
     Route: 065
     Dates: start: 20250729
  16. HIZENTRA [Suspect]
     Active Substance: HUMAN IMMUNOGLOBULIN G
     Dosage: 4 G, QW
     Route: 065
     Dates: start: 20250729
  17. ZENHALE [Concomitant]
     Active Substance: FORMOTEROL FUMARATE\MOMETASONE FUROATE
     Indication: Asthma
     Route: 065
  18. SPIRIVA [Concomitant]
     Active Substance: TIOTROPIUM BROMIDE MONOHYDRATE
     Indication: Asthma
  19. ATROVENT [Concomitant]
     Active Substance: IPRATROPIUM BROMIDE
  20. VENTOLIN [Concomitant]
     Active Substance: ALBUTEROL SULFATE
  21. VITAMIN B12 [Concomitant]
     Active Substance: CYANOCOBALAMIN
  22. CETIRIZINE [Concomitant]
     Active Substance: CETIRIZINE HYDROCHLORIDE
  23. NEXIUM [Concomitant]
     Active Substance: ESOMEPRAZOLE MAGNESIUM
  24. FUROSEMIDE [Concomitant]
     Active Substance: FUROSEMIDE
  25. DUPIXENT [Concomitant]
     Active Substance: DUPILUMAB
  26. AZITHROMYCIN [Concomitant]
     Active Substance: AZITHROMYCIN
  27. JUBLIA [Concomitant]
     Active Substance: EFINACONAZOLE
  28. PREDNISONE [Concomitant]
     Active Substance: PREDNISONE
  29. CORTEF [Concomitant]
     Active Substance: HYDROCORTISONE
  30. NAPROXEN [Concomitant]
     Active Substance: NAPROXEN
  31. AMOXICILLIN\CLAVULANIC ACID [Concomitant]
     Active Substance: AMOXICILLIN\CLAVULANIC ACID
  32. MELATONIN [Concomitant]
     Active Substance: MELATONIN
  33. SENNA [Concomitant]
     Active Substance: SENNOSIDES
  34. TERIPARATIDE [Concomitant]
     Active Substance: TERIPARATIDE
  35. CALCIUM [Concomitant]
     Active Substance: CALCIUM
  36. MORPHINE [Concomitant]
     Active Substance: MORPHINE
  37. TYLENOL [Concomitant]
     Active Substance: ACETAMINOPHEN
  38. POLYETHYLENE GLYCOL 3350 [Concomitant]
     Active Substance: POLYETHYLENE GLYCOL 3350
  39. GLYCERIN [Concomitant]
     Active Substance: GLYCERIN

REACTIONS (11)
  - Syncope [Unknown]
  - Oxygen saturation decreased [Unknown]
  - Infusion site swelling [Unknown]
  - Infusion site erythema [Unknown]
  - Therapy interrupted [Unknown]
  - Infusion site swelling [Unknown]
  - Frustration tolerance decreased [Unknown]
  - Malaise [Unknown]
  - Conduction disorder [Unknown]
  - Therapy interrupted [Unknown]
  - Therapy interrupted [Unknown]

NARRATIVE: CASE EVENT DATE: 20250523
